FAERS Safety Report 5190659-6 (Version None)
Quarter: 2006Q4

REPORT INFORMATION
  Report Type: 
  Country: None (occurrence: None)
  Receive Date: 20061222
  Receipt Date: 20061103
  Transmission Date: 20070319
  Serious: No
  Sender: FDA-Public Use
  Company Number: US-BRISTOL-MYERS SQUIBB COMPANY-13565734

PATIENT
  Age: 42 Year
  Sex: Male
  Weight: 85 kg

DRUGS (8)
  1. ORENCIA [Suspect]
     Indication: RHEUMATOID ARTHRITIS
     Route: 042
     Dates: start: 20061001
  2. SINGULAIR [Concomitant]
  3. MOTRIN [Concomitant]
  4. FUROSEMIDE [Concomitant]
  5. ALTACE [Concomitant]
  6. PLAVIX [Concomitant]
  7. LIPITOR [Concomitant]
  8. ZOLOFT [Concomitant]

REACTIONS (2)
  - FLUSHING [None]
  - WHEEZING [None]
